FAERS Safety Report 24203074 (Version 3)
Quarter: 2024Q4

REPORT INFORMATION
  Report Type: Report from Study
  Country: IE (occurrence: IE)
  Receive Date: 20240813
  Receipt Date: 20241226
  Transmission Date: 20250115
  Serious: Yes (Other)
  Sender: ABBVIE
  Company Number: IE-ABBVIE-5859251

PATIENT
  Age: 74 Year
  Sex: Male

DRUGS (16)
  1. CARBIDOPA\LEVODOPA [Suspect]
     Active Substance: CARBIDOPA\LEVODOPA
     Indication: Parkinson^s disease
     Dosage: 2 CASSETTE?FREQUENCY TEXT: CONTINUOUS
     Route: 050
     Dates: start: 20190401
  2. CARBIDOPA\LEVODOPA [Suspect]
     Active Substance: CARBIDOPA\LEVODOPA
     Dosage: 2 CASSETTE?FREQUENCY TEXT: CONTINUOUS
     Route: 050
  3. CARBIDOPA\LEVODOPA [Suspect]
     Active Substance: CARBIDOPA\LEVODOPA
     Dosage: 2 CASSETTE?FREQUENCY TEXT: CONTINUOUS?LAST ADMIN DATE: JUL 2024
     Route: 050
     Dates: start: 20240719
  4. CARBIDOPA\LEVODOPA [Suspect]
     Active Substance: CARBIDOPA\LEVODOPA
     Dosage: 2 CASSETTE?FREQUENCY TEXT: CONTINUOUS
     Route: 050
     Dates: start: 20240723, end: 20240724
  5. CARBIDOPA\LEVODOPA [Suspect]
     Active Substance: CARBIDOPA\LEVODOPA
     Dosage: 2 CASSETTE?FREQUENCY TEXT: CONTINUOUS?LAST ADMIN DATE: 2024
     Route: 050
     Dates: start: 20240724
  6. CARBIDOPA\LEVODOPA [Suspect]
     Active Substance: CARBIDOPA\LEVODOPA
     Dosage: 2 CASSETTE?FREQUENCY TEXT: CONTINUOUS?LAST ADMIN DATE: AUG 2024
     Route: 050
     Dates: start: 20240807
  7. CARBIDOPA\LEVODOPA [Suspect]
     Active Substance: CARBIDOPA\LEVODOPA
     Dosage: 2 CASSETTE?FREQUENCY TEXT: CONTINUOUS?LAST ADMIN DATE: 2024
     Route: 050
     Dates: start: 20240813
  8. CARBIDOPA\LEVODOPA [Suspect]
     Active Substance: CARBIDOPA\LEVODOPA
     Dosage: 2 CASSETTE?FREQUENCY TEXT: CONTINUOUS
     Route: 050
     Dates: start: 20241223
  9. TRAZODONE [Concomitant]
     Active Substance: TRAZODONE HYDROCHLORIDE
     Indication: Product used for unknown indication
     Dosage: 25.5 MG AT NIGHT
  10. ZOPICLONE [Concomitant]
     Active Substance: ZOPICLONE
     Indication: Product used for unknown indication
     Dosage: 7.5 MG
  11. NEXIUM [Concomitant]
     Active Substance: ESOMEPRAZOLE MAGNESIUM
     Indication: Product used for unknown indication
  12. ARIPIPRAZOLE [Concomitant]
     Active Substance: ARIPIPRAZOLE
     Indication: Product used for unknown indication
  13. PRAMIPEXOLE [Concomitant]
     Active Substance: PRAMIPEXOLE\PRAMIPEXOLE DIHYDROCHLORIDE
     Indication: Product used for unknown indication
     Dosage: 0.26 MG
  14. AVODART [Concomitant]
     Active Substance: DUTASTERIDE
     Indication: Product used for unknown indication
     Dosage: 0.5 MG AT NIGHT
  15. UROTECIN [Concomitant]
     Indication: Product used for unknown indication
     Dosage: NIGHT
  16. COVID-19 Vaccine [Concomitant]
     Indication: COVID-19 immunisation

REACTIONS (5)
  - Embedded device [Not Recovered/Not Resolved]
  - Device physical property issue [Not Recovered/Not Resolved]
  - Device occlusion [Recovered/Resolved]
  - Stoma site discharge [Not Recovered/Not Resolved]
  - Device issue [Not Recovered/Not Resolved]

NARRATIVE: CASE EVENT DATE: 20240701
